FAERS Safety Report 14539851 (Version 1)
Quarter: 2018Q1

REPORT INFORMATION
  Report Type: Report from Study
  Country: None (occurrence: ES)
  Receive Date: 20180216
  Receipt Date: 20180216
  Transmission Date: 20180509
  Serious: Yes (Other)
  Sender: FDA-Public Use
  Company Number: ES-ABBVIE-16P-144-1703382-00

PATIENT
  Age: 55 Year
  Sex: Female

DRUGS (6)
  1. MESOPRAZOLE [Concomitant]
     Indication: GASTROOESOPHAGEAL REFLUX DISEASE
     Route: 048
     Dates: start: 201512
  2. HUMIRA [Suspect]
     Active Substance: ADALIMUMAB
     Indication: COLITIS ULCERATIVE
     Route: 058
     Dates: start: 201109, end: 20160505
  3. PECTOX LISINA [Concomitant]
     Indication: VOCAL CORD POLYP
     Route: 048
     Dates: start: 20150203
  4. PENTASA [Concomitant]
     Active Substance: MESALAMINE
     Indication: COLITIS ULCERATIVE
     Route: 048
     Dates: start: 20090203
  5. OSTEOPOR [Concomitant]
     Indication: OSTEOPOROSIS
     Route: 048
     Dates: start: 20150324
  6. HIDROFEROL [Concomitant]
     Active Substance: CALCIFEDIOL
     Indication: COLITIS ULCERATIVE
     Route: 048
     Dates: start: 20141219

REACTIONS (1)
  - Prolactin-producing pituitary tumour [Recovered/Resolved]

NARRATIVE: CASE EVENT DATE: 20160505
